FAERS Safety Report 4270070-2 (Version None)
Quarter: 2004Q1

REPORT INFORMATION
  Report Type: 
  Country: None (occurrence: None)
  Receive Date: 20040113
  Receipt Date: 20040113
  Transmission Date: 20041129
  Serious: Yes (Hospitalization)
  Sender: FDA-Public Use
  Company Number: None

PATIENT
  Age: 69 Year
  Sex: Male

DRUGS (2)
  1. DAUNORUBICIN HCL [Suspect]
     Indication: CARCINOMA
     Dosage: 90 MG  4 DOSES
  2. CYTARABINE [Suspect]
     Indication: CARCINOMA
     Dosage: 400 MG

REACTIONS (1)
  - FEBRILE NEUTROPENIA [None]
